FAERS Safety Report 5935320-2 (Version None)
Quarter: 2008Q4

REPORT INFORMATION
  Report Type: 
  Country: None (occurrence: None)
  Receive Date: 20081030
  Receipt Date: 20081029
  Transmission Date: 20090506
  Serious: Yes (Death)
  Sender: FDA-Public Use
  Company Number: US-BRISTOL-MYERS SQUIBB COMPANY-11949609

PATIENT
  Age: 68 Year
  Sex: Male
  Weight: 59 kg

DRUGS (4)
  1. PACLITAXEL [Suspect]
     Indication: BLADDER CANCER
     Dosage: 0.1256 MG
     Dates: start: 20020613, end: 20020613
  2. CISPLATIN [Suspect]
     Indication: BLADDER CANCER
     Dosage: 0.1099 MG
     Dates: start: 20020613, end: 20020613
  3. GEMCITABINE [Suspect]
     Indication: BLADDER CANCER
     Dosage: INITIAL DOSE ON 13-JUN-02
     Dates: start: 20020613, end: 20020619
  4. ALGIASDIN [Concomitant]
     Dates: start: 20020113, end: 20020625

REACTIONS (2)
  - CARDIOPULMONARY FAILURE [None]
  - PNEUMONIA [None]
